FAERS Safety Report 6004818-3 (Version None)
Quarter: 2008Q4

REPORT INFORMATION
  Report Type: 
  Country: None (occurrence: None)
  Receive Date: 20081216
  Receipt Date: 20081208
  Transmission Date: 20090506
  Serious: Yes (Other)
  Sender: FDA-Public Use
  Company Number: ES-PFIZER INC-2008151786

PATIENT

DRUGS (1)
  1. METHYLPREDNISOLONE SODIUM SUCCINATE AND METHYLPREDNISOLONE SULEPTANATE [Suspect]
     Dosage: 1 G, 1X/DAY

REACTIONS (1)
  - PARAPARESIS [None]
